FAERS Safety Report 21120858 (Version 1)
Quarter: 2022Q3

REPORT INFORMATION
  Report Type: Spontaneous
  Country: US (occurrence: None)
  Receive Date: 20220722
  Receipt Date: 20220722
  Transmission Date: 20221026
  Serious: No
  Sender: FDA-Public Use
  Company Number: None

PATIENT
  Sex: 0

DRUGS (1)
  1. LENVIMA [Suspect]
     Active Substance: LENVATINIB

REACTIONS (7)
  - Hepatocellular carcinoma [None]
  - Decreased appetite [None]
  - Weight decreased [None]
  - Irritability [None]
  - Pain [None]
  - Vomiting [None]
  - Stomatitis [None]
